FAERS Safety Report 5628651-7 (Version None)
Quarter: 2008Q1

REPORT INFORMATION
  Report Type: 
  Country: None (occurrence: None)
  Receive Date: 20080214
  Receipt Date: 20080214
  Transmission Date: 20080703
  Serious: No
  Sender: FDA-Public Use
  Company Number: None

PATIENT
  Age: 56 Year
  Sex: Male
  Weight: 111.5849 kg

DRUGS (1)
  1. GENTAMICIN [Suspect]
     Indication: APPENDICITIS PERFORATED
     Dosage: INTRAVENOUS
     Route: 042
     Dates: start: 20071002, end: 20071008

REACTIONS (3)
  - BALANCE DISORDER [None]
  - EYE DISORDER [None]
  - THERAPEUTIC AGENT TOXICITY [None]
